FAERS Safety Report 9822249 (Version 1)
Quarter: 2014Q1

REPORT INFORMATION
  Report Type: Spontaneous
  Country: AU (occurrence: None)
  Receive Date: 20140115
  Receipt Date: 20140115
  Transmission Date: 20141002
  Serious: Yes (Hospitalization)
  Sender: FDA-Public Use
  Company Number: FK201400093

PATIENT
  Age: 5 Year
  Sex: Female

DRUGS (4)
  1. CISPLATIN [Suspect]
     Indication: MEDULLOBLASTOMA
     Dosage: 75 MG/M2, SIX 29-DAY CYCLES (ON DAY 1)
  2. CYCLOPHOSPHAMIDE [Suspect]
     Indication: MEDULLOBLASTOMA
     Dosage: 100 MG/M2, SEX 29-DAY CYCLES (ON DAY 2 AND #)
  3. VINCRISTINE [Suspect]
     Indication: MEDULLOBLASTOMA
     Dosage: 1.5 MG/M2, SIX 29 DAY CYCLES (ON DAY 1 AND 8)
  4. PEGYLATE HUMAN GRANULOCYTE COLONY STIMULATING FACTOR(GRANULOCYTE COLONY STIMULATING FACTOR) [Concomitant]

REACTIONS (11)
  - Ototoxicity [None]
  - Venoocclusive liver disease [None]
  - Abdominal distension [None]
  - Ascites [None]
  - Hepatomegaly [None]
  - Thrombocytopenia [None]
  - Hyperbilirubinaemia [None]
  - Haemoglobin decreased [None]
  - Weight increased [None]
  - Aspartate aminotransferase increased [None]
  - Alanine aminotransferase increased [None]
